FAERS Safety Report 9786986 (Version 2)
Quarter: 2013Q4

REPORT INFORMATION
  Report Type: Spontaneous
  Country: US (occurrence: US)
  Receive Date: 20131227
  Receipt Date: 20131227
  Transmission Date: 20140711
  Serious: Yes (Other)
  Sender: FDA-Public Use
  Company Number: CHPA2010US14577

PATIENT
  Sex: Female

DRUGS (4)
  1. VOLTAREN GEL [Suspect]
     Indication: ARTHRITIS
     Dosage: UNK, UNK
     Route: 061
     Dates: start: 20100909, end: 20100909
  2. VOLTAREN GEL [Suspect]
     Indication: PAIN
  3. VOLTAREN GEL [Suspect]
     Indication: OFF LABEL USE
  4. ADVIL//IBUPROFEN [Concomitant]
     Dosage: UNK
     Route: 061

REACTIONS (2)
  - Rotator cuff syndrome [Unknown]
  - Wrong technique in drug usage process [Unknown]
